FAERS Safety Report 25084002 (Version 2)
Quarter: 2025Q1

REPORT INFORMATION
  Report Type: Spontaneous
  Country: US (occurrence: US)
  Receive Date: 20250317
  Receipt Date: 20250324
  Transmission Date: 20250408
  Serious: Yes (Other)
  Sender: ALEXION PHARMACEUTICALS
  Company Number: US-AstraZeneca-CH-00823888AP

PATIENT

DRUGS (1)
  1. SYMBICORT [Suspect]
     Active Substance: BUDESONIDE\FORMOTEROL FUMARATE DIHYDRATE
     Route: 065

REACTIONS (6)
  - Foreign body in throat [Unknown]
  - Wrong technique in device usage process [Unknown]
  - Device defective [Unknown]
  - Product dose omission issue [Unknown]
  - Product physical issue [Unknown]
  - Device breakage [Unknown]
